FAERS Safety Report 15896570 (Version 16)
Quarter: 2020Q2

REPORT INFORMATION
  Report Type: Spontaneous
  Country: US (occurrence: US)
  Receive Date: 20190131
  Receipt Date: 20200529
  Transmission Date: 20200713
  Serious: Yes (Death, Hospitalization)
  Sender: FDA-Public Use
  Company Number: US-ACTELION-A-NJ2019-185670

PATIENT
  Age: 26 Year
  Sex: Female
  Weight: 61.22 kg

DRUGS (4)
  1. VELETRI [Suspect]
     Active Substance: EPOPROSTENOL
     Dosage: 28 NG/KG, PER MIN
     Route: 042
  2. OPSUMIT [Concomitant]
     Active Substance: MACITENTAN
     Indication: PULMONARY ARTERIAL HYPERTENSION
     Route: 048
  3. SILDENAFIL. [Suspect]
     Active Substance: SILDENAFIL
     Indication: PRODUCT USED FOR UNKNOWN INDICATION
     Route: 065
  4. VELETRI [Suspect]
     Active Substance: EPOPROSTENOL
     Indication: PULMONARY ARTERIAL HYPERTENSION
     Dosage: 28 NG/KG, PER MIN
     Route: 042

REACTIONS (14)
  - Sepsis [Unknown]
  - Hospitalisation [Unknown]
  - Pulmonary arterial hypertension [Fatal]
  - Cholestasis [Unknown]
  - Back disorder [Unknown]
  - Nausea [Unknown]
  - Vascular device infection [Unknown]
  - Ascites [Recovered/Resolved]
  - Abdominal pain [Unknown]
  - Blood potassium decreased [Unknown]
  - Vomiting [Unknown]
  - Cardiac failure [Fatal]
  - Hepatic cirrhosis [Unknown]
  - Haematochezia [Unknown]

NARRATIVE: CASE EVENT DATE: 20200406
